FAERS Safety Report 18954826 (Version 3)
Quarter: 2021Q1

REPORT INFORMATION
  Report Type: Spontaneous
  Country: IN (occurrence: IN)
  Receive Date: 20210301
  Receipt Date: 20210331
  Transmission Date: 20210420
  Serious: Yes (Death, Other)
  Sender: FDA-Public Use
  Company Number: IN-PFIZER INC-2020261474

PATIENT
  Age: 73 Year
  Sex: Female

DRUGS (5)
  1. ELDERVIT [ASCORBIC ACID] [Concomitant]
     Dosage: 1 ML, EVERY 3 MONTHS
     Route: 030
  2. WYSOLONE [Concomitant]
     Active Substance: PREDNISOLONE
     Dosage: 5 MG, 1X/DAY
  3. GRASTIM [Concomitant]
     Dosage: UNK
  4. PALBACE [Suspect]
     Active Substance: PALBOCICLIB
     Indication: BREAST CANCER METASTATIC
     Dosage: 125 MG, 1X/DAY
     Route: 048
     Dates: start: 20190822
  5. LETROZOLE. [Concomitant]
     Active Substance: LETROZOLE
     Dosage: 2.5 MG, 1X/DAY

REACTIONS (22)
  - Decreased appetite [Fatal]
  - Lymphocyte percentage increased [Unknown]
  - Eosinophil count decreased [Unknown]
  - Organ failure [Fatal]
  - Haematocrit decreased [Unknown]
  - Urinary tract infection [Fatal]
  - Mean cell haemoglobin increased [Unknown]
  - Platelet count decreased [Unknown]
  - Mean cell volume increased [Unknown]
  - Mean cell haemoglobin concentration increased [Unknown]
  - White blood cell count decreased [Unknown]
  - Haemoglobin decreased [Unknown]
  - Anisocytosis [Unknown]
  - Leukopenia [Unknown]
  - Pancytopenia [Unknown]
  - Red blood cell count decreased [Unknown]
  - Macrocytosis [Unknown]
  - Glycosylated haemoglobin increased [Unknown]
  - Red cell distribution width increased [Unknown]
  - Neutrophil percentage decreased [Unknown]
  - Tri-iodothyronine decreased [Unknown]
  - Polychromasia [Unknown]

NARRATIVE: CASE EVENT DATE: 20200701
